FAERS Safety Report 7824484-1 (Version None)
Quarter: 2011Q4

REPORT INFORMATION
  Report Type: 
  Country: None (occurrence: None)
  Receive Date: 20111019
  Receipt Date: 20111013
  Transmission Date: 20120403
  Serious: Yes (Hospitalization)
  Sender: FDA-Public Use
  Company Number: FR-JNJFOC-20101109126

PATIENT
  Age: 48 Year
  Sex: Female
  Weight: 68 kg

DRUGS (5)
  1. SIMPONI [Suspect]
     Indication: RHEUMATOID ARTHRITIS
     Route: 058
     Dates: start: 20101108
  2. CICLOPIROX [Concomitant]
     Indication: VULVOVAGINAL MYCOTIC INFECTION
     Route: 003
     Dates: start: 20101105, end: 20101120
  3. ACETAMINOPHEN [Concomitant]
     Indication: INFLUENZA
     Route: 048
     Dates: start: 20101102, end: 20101104
  4. KETOCONAZOLE [Concomitant]
     Indication: VULVOVAGINAL MYCOTIC INFECTION
     Route: 067
     Dates: start: 20101105, end: 20101105
  5. SIMPONI [Suspect]
     Route: 058
     Dates: start: 20101004

REACTIONS (1)
  - PYELONEPHRITIS [None]
